FAERS Safety Report 14094081 (Version 1)
Quarter: 2017Q4

REPORT INFORMATION
  Report Type: Report from Study
  Country: US (occurrence: US)
  Receive Date: 20171016
  Receipt Date: 20171016
  Transmission Date: 20180321
  Serious: Yes (Death, Other)
  Sender: FDA-Public Use
  Company Number: US-GILEAD-2017-0298972

PATIENT
  Age: 82 Year
  Sex: Male

DRUGS (1)
  1. RANOLAZINE. [Suspect]
     Active Substance: RANOLAZINE
     Indication: ANGINA PECTORIS
     Dosage: 500 MG, UNK
     Route: 048
     Dates: end: 201709

REACTIONS (6)
  - Atrial fibrillation [Unknown]
  - Sepsis [Fatal]
  - Pemphigoid [Unknown]
  - Diabetes mellitus [Unknown]
  - Pneumonia [Unknown]
  - Cardiac failure congestive [Unknown]
